FAERS Safety Report 14562377 (Version 1)
Quarter: 2018Q1

REPORT INFORMATION
  Report Type: Spontaneous
  Country: US (occurrence: US)
  Receive Date: 20180221
  Receipt Date: 20180221
  Transmission Date: 20180509
  Serious: Yes (Other)
  Sender: FDA-Public Use
  Company Number: None

PATIENT
  Age: 60 Year
  Sex: Female
  Weight: 47.5 kg

DRUGS (16)
  1. POSACONAZOLE [Concomitant]
     Active Substance: POSACONAZOLE
  2. VANCOMYCIN [Concomitant]
     Active Substance: VANCOMYCIN
  3. IMIPENEM-CILASTATIN [Concomitant]
     Active Substance: CILASTATIN SODIUM\IMIPENEM
  4. FUROSEMIDE. [Concomitant]
     Active Substance: FUROSEMIDE
  5. AZITHROMYCIN ANHYDROUS. [Suspect]
     Active Substance: AZITHROMYCIN ANHYDROUS
     Indication: MYCOBACTERIAL INFECTION
     Route: 042
     Dates: start: 20180217, end: 20180221
  6. MYCOPHENOLATE MOFETIL. [Concomitant]
     Active Substance: MYCOPHENOLATE MOFETIL
  7. BASILIXIMAB [Concomitant]
     Active Substance: BASILIXIMAB
  8. METHYLPREDNISOLONE. [Concomitant]
     Active Substance: METHYLPREDNISOLONE
  9. NYSTATIN. [Concomitant]
     Active Substance: NYSTATIN
  10. CHLOREHEXIDINE [Concomitant]
  11. TACROLIMUS. [Concomitant]
     Active Substance: TACROLIMUS
  12. GANCICLOVIR. [Concomitant]
     Active Substance: GANCICLOVIR
  13. TIGECYCLINE. [Concomitant]
     Active Substance: TIGECYCLINE
  14. PANTOPRAZOLE [Concomitant]
     Active Substance: PANTOPRAZOLE
  15. AMPHOTERICIN CONVENTIONAL SMALL VOLUME NEBULIZATION [Concomitant]
  16. AMICIKACIN SMALL VOLUME NEBULIZATION [Concomitant]

REACTIONS (5)
  - Drug hypersensitivity [None]
  - Haemodynamic instability [None]
  - Mental status changes [None]
  - Somnolence [None]
  - Hypotension [None]

NARRATIVE: CASE EVENT DATE: 20180221
